FAERS Safety Report 9870666 (Version 1)
Quarter: 2014Q1

REPORT INFORMATION
  Report Type: Spontaneous
  Country: US (occurrence: US)
  Receive Date: 20140205
  Receipt Date: 20140205
  Transmission Date: 20141002
  Serious: Yes (Other)
  Sender: FDA-Public Use
  Company Number: US-PFIZER INC-2014029767

PATIENT
  Sex: Female

DRUGS (1)
  1. ADVIL [Suspect]
     Dosage: 2DF

REACTIONS (8)
  - Shock [Unknown]
  - Fatigue [Unknown]
  - Feeling abnormal [Unknown]
  - Fear [Unknown]
  - Chills [Unknown]
  - Malaise [Unknown]
  - Thinking abnormal [Unknown]
  - Confusional state [Unknown]
